FAERS Safety Report 9758958 (Version 2)
Quarter: 2014Q1

REPORT INFORMATION
  Report Type: Spontaneous
  Country: US (occurrence: US)
  Receive Date: 20131216
  Receipt Date: 20140304
  Transmission Date: 20141002
  Serious: Yes (Hospitalization, Other)
  Sender: FDA-Public Use
  Company Number: US-BAYER-2013-150482

PATIENT
  Age: 25 Year
  Sex: Female
  Weight: 45.35 kg

DRUGS (1)
  1. MIRENA [Suspect]
     Indication: CONTRACEPTION
     Dosage: 20 MCG/24HR, CONT
     Route: 015
     Dates: start: 2010, end: 201303

REACTIONS (15)
  - Embedded device [None]
  - Injury [None]
  - Abdominal pain lower [None]
  - Pelvic inflammatory disease [None]
  - Device difficult to use [None]
  - Emotional distress [None]
  - Medical device pain [None]
  - Infection [None]
  - Genital haemorrhage [None]
  - Vomiting [None]
  - Insomnia [None]
  - Anxiety [None]
  - Depression [None]
  - Fear [None]
  - Device issue [None]
